FAERS Safety Report 6997434-8 (Version None)
Quarter: 2010Q3

REPORT INFORMATION
  Report Type: 
  Country: None (occurrence: None)
  Receive Date: 20100918
  Receipt Date: 20091007
  Transmission Date: 20110219
  Serious: No
  Sender: FDA-Public Use
  Company Number: US-WYE-H11523009

PATIENT
  Sex: Female

DRUGS (4)
  1. EFFEXOR XR [Suspect]
     Route: 048
  2. SINGULAIR [Concomitant]
  3. ABILIFY [Concomitant]
  4. ADVAIR DISKUS 100/50 [Concomitant]

REACTIONS (7)
  - AGORAPHOBIA [None]
  - DEPRESSION [None]
  - DRUG WITHDRAWAL SYNDROME [None]
  - GASTRIC PH DECREASED [None]
  - NAUSEA [None]
  - PANIC ATTACK [None]
  - REGURGITATION [None]
